FAERS Safety Report 7999246-5 (Version None)
Quarter: 2011Q4

REPORT INFORMATION
  Report Type: 
  Country: None (occurrence: None)
  Receive Date: 20111221
  Receipt Date: 20111220
  Transmission Date: 20120403
  Serious: Yes (Other)
  Sender: FDA-Public Use
  Company Number: CHPA2011US018399

PATIENT
  Age: 50 Year
  Sex: Male

DRUGS (2)
  1. PREVACID 24 HR [Suspect]
     Dosage: 30 MG, QD
     Route: 048
  2. PLAVIX [Concomitant]

REACTIONS (4)
  - OFF LABEL USE [None]
  - OVERDOSE [None]
  - INCORRECT DRUG ADMINISTRATION DURATION [None]
  - MYOCARDIAL INFARCTION [None]
